FAERS Safety Report 5492126-9 (Version None)
Quarter: 2007Q4

REPORT INFORMATION
  Report Type: 
  Country: None (occurrence: None)
  Receive Date: 20071015
  Receipt Date: 20070914
  Transmission Date: 20080405
  Serious: No
  Sender: FDA-Public Use
  Company Number: 2007SP003199

PATIENT
  Age: 51 Year
  Sex: Male
  Weight: 80.2867 kg

DRUGS (8)
  1. LUNESTA [Suspect]
     Indication: INSOMNIA
     Dosage: 2 MG;PRN;ORAL  3 MG;PRN;ORAL
     Route: 048
     Dates: start: 20070101, end: 20070101
  2. LUNESTA [Suspect]
     Indication: INSOMNIA
     Dosage: 2 MG;PRN;ORAL  3 MG;PRN;ORAL
     Route: 048
     Dates: start: 20070101
  3. KLONOPIN [Suspect]
     Dates: end: 20070909
  4. KLONOPIN [Concomitant]
  5. EFFEXOR [Concomitant]
  6. BUSPAR [Concomitant]
  7. METHOTREXATE [Concomitant]
  8. SULFASALAZINE [Concomitant]

REACTIONS (1)
  - INSOMNIA [None]
